FAERS Safety Report 25423368 (Version 1)
Quarter: 2025Q2

REPORT INFORMATION
  Report Type: Spontaneous
  Country: US (occurrence: None)
  Receive Date: 20250611
  Receipt Date: 20250611
  Transmission Date: 20250717
  Serious: Yes (Other)
  Sender: FDA-CTU
  Company Number: None

PATIENT
  Age: 47 Year
  Sex: Male
  Weight: 74.8 kg

DRUGS (4)
  1. ONFI [Suspect]
     Active Substance: CLOBAZAM
     Indication: Epilepsy
     Dosage: OTHER QUANTITY : 1/2 TAB-AM, 1/2 TAB -AFTERNOON, 1 TAB-PM;?FREQUENCY : 3 TIMES A DAY;?
  2. VIMPAT [Suspect]
     Active Substance: LACOSAMIDE
  3. KEPPRA [Suspect]
     Active Substance: LEVETIRACETAM
  4. EPIDIOLEX [Suspect]
     Active Substance: CANNABIDIOL

REACTIONS (1)
  - Therapeutic product effect decreased [None]
